FAERS Safety Report 6542384-4 (Version None)
Quarter: 2010Q1

REPORT INFORMATION
  Report Type: 
  Country: None (occurrence: None)
  Receive Date: 20100119
  Receipt Date: 20100108
  Transmission Date: 20100710
  Serious: Yes (Disabling, Other)
  Sender: FDA-Public Use
  Company Number: US-BAYER-201010922NA

PATIENT
  Sex: Female

DRUGS (8)
  1. MAGNEVIST [Suspect]
     Indication: ANGIOGRAM
  2. OMNISCAN [Suspect]
     Indication: ANGIOGRAM
  3. OPTIMARK [Suspect]
     Indication: ANGIOGRAM
  4. MULTIHANCE [Suspect]
     Indication: ANGIOGRAM
  5. PROHANCE [Suspect]
     Indication: ANGIOGRAM
  6. UNSPECIFIED GADOLINIUM-BASED CONTRAST AGENT [Suspect]
     Indication: ANGIOGRAM
     Dates: start: 20040501, end: 20040501
  7. UNSPECIFIED GADOLINIUM-BASED CONTRAST AGENT [Suspect]
     Dates: start: 20040801, end: 20040801
  8. PAIN MEDICATIONS [Concomitant]
     Indication: PAIN

REACTIONS (4)
  - DEFORMITY [None]
  - MOTOR DYSFUNCTION [None]
  - NEPHROGENIC SYSTEMIC FIBROSIS [None]
  - PAIN [None]
